FAERS Safety Report 11132269 (Version 1)
Quarter: 2015Q2

REPORT INFORMATION
  Report Type: Spontaneous
  Country: None (occurrence: None)
  Receive Date: 20150521
  Receipt Date: 20150521
  Transmission Date: 20150821
  Serious: Yes (Disabling)
  Sender: FDA-Public Use
  Company Number: None

PATIENT
  Age: 32 Year
  Sex: Female
  Weight: 54.43 kg

DRUGS (5)
  1. JUNEL [Concomitant]
     Active Substance: ETHINYL ESTRADIOL\NORETHINDRONE ACETATE
  2. MAGNESIUM [Concomitant]
     Active Substance: MAGNESIUM
  3. LEVOFLOXACIN. [Suspect]
     Active Substance: LEVOFLOXACIN
     Indication: SINUSITIS
     Dosage: 1 PILL/DAY, ONCE DAILY, TAKEN BY MOUTH
     Route: 048
     Dates: start: 20150305, end: 20150305
  4. ALEVE [Concomitant]
     Active Substance: NAPROXEN SODIUM
  5. PROBIOTICS [Concomitant]
     Active Substance: PROBIOTICS NOS

REACTIONS (6)
  - Peripheral swelling [None]
  - Wheelchair user [None]
  - Abasia [None]
  - Arthralgia [None]
  - Pain in extremity [None]
  - Dysstasia [None]

NARRATIVE: CASE EVENT DATE: 20150505
